FAERS Safety Report 6380018-2 (Version None)
Quarter: 2009Q3

REPORT INFORMATION
  Report Type: 
  Country: None (occurrence: None)
  Receive Date: 20090928
  Receipt Date: 20090909
  Transmission Date: 20100115
  Serious: Yes (Other)
  Sender: FDA-Public Use
  Company Number: US-ASTRAZENECA-2009SE12412

PATIENT
  Age: 81 Year
  Sex: Male
  Weight: 57.2 kg

DRUGS (7)
  1. ZOLADEX [Suspect]
     Route: 058
     Dates: start: 19990101, end: 20071101
  2. CASODEX [Concomitant]
     Route: 048
  3. PLAVIX [Concomitant]
  4. METOPROLOL [Concomitant]
  5. ENALAPRIL MALEATE [Concomitant]
  6. SIMVASTATIN [Concomitant]
  7. ASPIRIN [Concomitant]

REACTIONS (2)
  - MYOCARDIAL INFARCTION [None]
  - PROSTATIC SPECIFIC ANTIGEN INCREASED [None]
